FAERS Safety Report 8335832-0 (Version None)
Quarter: 2012Q2

REPORT INFORMATION
  Report Type: 
  Country: None (occurrence: None)
  Receive Date: 20120501
  Receipt Date: 20120501
  Transmission Date: 20120825
  Serious: Yes (Hospitalization)
  Sender: FDA-Public Use
  Company Number: None

PATIENT
  Age: 85 Year
  Sex: Male
  Weight: 88 kg

DRUGS (13)
  1. COZAAR [Suspect]
     Indication: HYPERTENSION
     Dosage: 10MG DAILY PO CHRONIC
     Route: 048
  2. ASTELIN [Concomitant]
  3. ASMANEX TWISTHALER [Concomitant]
  4. LEVEMAR [Concomitant]
  5. SEPTRA DS [Suspect]
     Indication: URINARY TRACT INFECTION
     Dosage: ONE TAB BID PO RECENT
     Route: 048
  6. PREDNISOLONE ACETATE [Concomitant]
  7. METOPROLOL TARTRATE [Concomitant]
  8. PROTONIX [Concomitant]
  9. MURO [Concomitant]
  10. ASPIRIN [Concomitant]
  11. GLIPIZIDE [Concomitant]
  12. CRESTOR [Concomitant]
  13. KETOROLAC TROMETHAMINE [Concomitant]

REACTIONS (5)
  - HYPOKALAEMIA [None]
  - HYPOPHAGIA [None]
  - RENAL FAILURE ACUTE [None]
  - HYPERKALAEMIA [None]
  - RENAL FAILURE CHRONIC [None]
